FAERS Safety Report 6491109-X (Version None)
Quarter: 2009Q4

REPORT INFORMATION
  Report Type: 
  Country: None (occurrence: None)
  Receive Date: 20091211
  Receipt Date: 20091210
  Transmission Date: 20100525
  Serious: Yes (Other)
  Sender: FDA-Public Use
  Company Number: US-PFIZER INC-2009289027

PATIENT
  Sex: Female

DRUGS (3)
  1. ZYVOX [Suspect]
     Dosage: 600 MG, 2X/DAY
     Route: 048
     Dates: start: 20091019, end: 20091021
  2. DOXYCYCLINE [Concomitant]
     Dosage: 100 MG, UNK
     Dates: start: 20091019, end: 20091025
  3. VALIUM [Concomitant]
     Dosage: 5 MG, UNK
     Dates: start: 20091019, end: 20091022

REACTIONS (3)
  - BONE PAIN [None]
  - DIARRHOEA HAEMORRHAGIC [None]
  - DYSPNOEA [None]
